FAERS Safety Report 4684581-9 (Version None)
Quarter: 2005Q2

REPORT INFORMATION
  Report Type: 
  Country: None (occurrence: None)
  Receive Date: 20050603
  Receipt Date: 20050517
  Transmission Date: 20051028
  Serious: Yes (Death, Hospitalization)
  Sender: FDA-Public Use
  Company Number: 03-NIP00126

PATIENT
  Age: 44 Year
  Sex: Female

DRUGS (1)
  1. NIPENT [Suspect]
     Dosage: 2 MG/M2.#1 ONE CYCLE OF 2 MG/M^2/DAY FOR 3 DAYS, INTRAVENOUS
     Route: 042
     Dates: start: 20010130, end: 20010201

REACTIONS (6)
  - ATRIAL FIBRILLATION [None]
  - BACTERIAL SEPSIS [None]
  - CONFUSIONAL STATE [None]
  - CYTOMEGALOVIRUS ANTIGEN POSITIVE [None]
  - METABOLIC ACIDOSIS [None]
  - RENAL FAILURE [None]
